FAERS Safety Report 17036870 (Version 3)
Quarter: 2020Q3

REPORT INFORMATION
  Report Type: Spontaneous
  Country: CN (occurrence: CN)
  Receive Date: 20191115
  Receipt Date: 20200723
  Transmission Date: 20201102
  Serious: Yes (Other)
  Sender: FDA-Public Use
  Company Number: CN-PFIZER INC-2019487941

PATIENT
  Age: 61 Year
  Sex: Male

DRUGS (1)
  1. XALKORI [Suspect]
     Active Substance: CRIZOTINIB
     Dosage: 250 MG, 2X/DAY
     Route: 048

REACTIONS (6)
  - Physical examination abnormal [Unknown]
  - Product physical issue [Unknown]
  - Carcinoembryonic antigen increased [Unknown]
  - Product quality issue [Unknown]
  - Poor quality product administered [Unknown]
  - Product leakage [Unknown]
